FAERS Safety Report 5879956-6 (Version None)
Quarter: 2008Q3

REPORT INFORMATION
  Report Type: 
  Country: None (occurrence: None)
  Receive Date: 20080912
  Receipt Date: 20080904
  Transmission Date: 20090109
  Serious: Yes (Hospitalization, Other)
  Sender: FDA-Public Use
  Company Number: BE-PFIZER INC-2008069456

PATIENT
  Sex: Female

DRUGS (11)
  1. MEDROL [Suspect]
     Dosage: TEXT:32MG, 16MG
     Route: 048
     Dates: start: 20080529
  2. MEDROL [Suspect]
     Dosage: TEXT:TDD:16MG
     Route: 048
     Dates: start: 20080815
  3. DEPAKENE [Concomitant]
  4. KEPPRA [Concomitant]
  5. GLICLAZIDE [Concomitant]
  6. METFORMAX [Concomitant]
  7. AMLODIPINE [Concomitant]
  8. INSULIN [Concomitant]
  9. BIO-MAGNESIUM [Concomitant]
  10. CALCIUM [Concomitant]
  11. NUTRITIONAL SUPPLEMENT [Concomitant]

REACTIONS (4)
  - DIABETIC COMA [None]
  - HAEMATOCRIT DECREASED [None]
  - PANCREATITIS [None]
  - PLATELET COUNT DECREASED [None]
